FAERS Safety Report 8418069-6 (Version None)
Quarter: 2012Q2

REPORT INFORMATION
  Report Type: 
  Country: None (occurrence: None)
  Receive Date: 20120607
  Receipt Date: 20120529
  Transmission Date: 20120825
  Serious: Yes (Hospitalization)
  Sender: FDA-Public Use
  Company Number: CA-CELGENEUS-028-AB007-11041274

PATIENT
  Sex: Female
  Weight: 87 kg

DRUGS (14)
  1. LIPITOR [Concomitant]
     Dosage: 10 MILLIGRAM
     Route: 048
     Dates: start: 20060101
  2. LIPITOR [Concomitant]
     Dosage: 20 MILLIGRAM
     Route: 065
  3. DICLOFENAC SODIUM [Concomitant]
     Indication: OSTEOARTHRITIS
     Dosage: 150 MILLIGRAM
     Route: 048
     Dates: start: 20040101
  4. METFORMIN HCL [Concomitant]
     Dosage: 500 MILLIGRAM
     Route: 065
  5. ABRAXANE [Suspect]
     Dosage: 125 MILLIGRAM/SQ. METER
     Route: 041
     Dates: start: 20110324, end: 20110426
  6. NORVASC [Concomitant]
     Indication: HYPERTENSION
     Dosage: 5 MILLIGRAM
     Route: 048
     Dates: start: 20060101
  7. SULINDAC [Concomitant]
     Route: 065
  8. GEMCITABINE [Suspect]
     Dosage: 1000 MILLIGRAM/SQ. METER
     Route: 041
     Dates: start: 20110209
  9. GEMCITABINE [Suspect]
     Dosage: 1000 MILLIGRAM/SQ. METER
     Route: 041
     Dates: start: 20110324, end: 20110426
  10. ATACAND [Concomitant]
     Indication: HYPERTENSION
     Dosage: 10 MILLIGRAM
     Route: 048
     Dates: start: 20060101
  11. ANTIBIOTICS [Concomitant]
     Route: 065
  12. ABRAXANE [Suspect]
     Dosage: 125 MILLIGRAM/SQ. METER
     Route: 041
     Dates: start: 20110209
  13. ASPIRIN [Concomitant]
     Indication: PROPHYLAXIS
     Dosage: 81 MILLIGRAM
     Route: 048
  14. ZANTAC [Concomitant]
     Dosage: 150 MILLIGRAM
     Route: 065

REACTIONS (1)
  - INTERSTITIAL LUNG DISEASE [None]
